FAERS Safety Report 6047484-3 (Version None)
Quarter: 2009Q1

REPORT INFORMATION
  Report Type: 
  Country: None (occurrence: None)
  Receive Date: 20090122
  Receipt Date: 20090113
  Transmission Date: 20090719
  Serious: Yes (Hospitalization, Other)
  Sender: FDA-Public Use
  Company Number: IL-ROXANE LABORATORIES, INC.-2009-RO-00062RO

PATIENT
  Age: 65 Year
  Sex: Female

DRUGS (5)
  1. LITHIUM CARBONATE [Suspect]
     Indication: BIPOLAR DISORDER
  2. LITHIUM CARBONATE [Suspect]
     Dosage: 600MG
  3. ELTROXIN [Suspect]
     Indication: HORMONE SUPPRESSION THERAPY
  4. CINACALCET [Suspect]
     Dosage: 30MG
  5. ANTIPSYCHOTIC THERAPY [Concomitant]
     Indication: MENTAL DISORDER

REACTIONS (5)
  - DERMATITIS PSORIASIFORM [None]
  - HYPERPARATHYROIDISM [None]
  - MENTAL IMPAIRMENT [None]
  - PARATHYROID TUMOUR BENIGN [None]
  - THYROID CANCER [None]
